FAERS Safety Report 21752682 (Version 1)
Quarter: 2022Q4

REPORT INFORMATION
  Report Type: Spontaneous
  Country: GB (occurrence: RO)
  Receive Date: 20221220
  Receipt Date: 20221220
  Transmission Date: 20230113
  Serious: Yes (Other)
  Sender: FDA-Public Use
  Company Number: GB-BRISTOL-MYERS SQUIBB COMPANY-2022-154102

PATIENT
  Sex: Male

DRUGS (2)
  1. REYATAZ [Suspect]
     Active Substance: ATAZANAVIR SULFATE
     Indication: HIV infection
     Dosage: DOSE : UNAVAILABLE;     FREQ : UNAVAILABLE
  2. PAC [Concomitant]
     Indication: HIV infection

REACTIONS (1)
  - Hepatic cytolysis [Unknown]
